FAERS Safety Report 16082427 (Version 1)
Quarter: 2019Q1

REPORT INFORMATION
  Report Type: Report from Study
  Country: None (occurrence: US)
  Receive Date: 20190318
  Receipt Date: 20190318
  Transmission Date: 20190418
  Serious: Yes (Hospitalization, Other)
  Sender: FDA-Public Use
  Company Number: US-ABBVIE-19K-163-2700210-00

PATIENT
  Age: 55 Year
  Sex: Female

DRUGS (2)
  1. METHOTREXATE. [Concomitant]
     Active Substance: METHOTREXATE
     Indication: RHEUMATOID ARTHRITIS
  2. HUMIRA [Suspect]
     Active Substance: ADALIMUMAB
     Indication: RHEUMATOID ARTHRITIS
     Route: 058
     Dates: start: 201006, end: 20190214

REACTIONS (4)
  - Systemic lupus erythematosus [Recovered/Resolved]
  - Systemic lupus erythematosus [Recovering/Resolving]
  - Painful respiration [Recovered/Resolved]
  - Breast cellulitis [Recovering/Resolving]

NARRATIVE: CASE EVENT DATE: 201809
